FAERS Safety Report 13777224 (Version 4)
Quarter: 2018Q1

REPORT INFORMATION
  Report Type: Spontaneous
  Country: US (occurrence: US)
  Receive Date: 20170721
  Receipt Date: 20180315
  Transmission Date: 20180508
  Serious: No
  Sender: FDA-Public Use
  Company Number: US-PFIZER INC-2017116393

PATIENT
  Age: 55 Year
  Sex: Female
  Weight: 66 kg

DRUGS (10)
  1. GENOTROPIN [Suspect]
     Active Substance: SOMATROPIN
     Indication: GROWTH HORMONE DEFICIENCY
     Dosage: 0.4 MG, 1X/DAY
     Dates: start: 201701
  2. GENOTROPIN [Suspect]
     Active Substance: SOMATROPIN
     Dosage: 4 MG, UNK
  3. LIOTHYRONINE [Concomitant]
     Active Substance: LIOTHYRONINE
     Dosage: 5 UG, DAILY
  4. GENOTROPIN [Suspect]
     Active Substance: SOMATROPIN
     Dosage: 6 MG, UNK
  5. GENOTROPIN [Suspect]
     Active Substance: SOMATROPIN
     Dosage: 0.6 MG, DAILY
     Dates: start: 201701
  6. GENOTROPIN [Suspect]
     Active Substance: SOMATROPIN
     Dosage: 2 MG, UNK
  7. SYNTHROID [Concomitant]
     Active Substance: LEVOTHYROXINE SODIUM
     Indication: HYPOTHYROIDISM
     Dosage: 150 UG, 1X/DAY
     Route: 048
  8. ESTRADIOL. [Concomitant]
     Active Substance: ESTRADIOL
     Indication: HORMONE REPLACEMENT THERAPY
     Dosage: 0.5 MG, 1X/DAY
     Route: 048
  9. GENOTROPIN [Suspect]
     Active Substance: SOMATROPIN
     Dosage: 6 UG, DAILY
     Dates: start: 201703
  10. GENOTROPIN [Suspect]
     Active Substance: SOMATROPIN
     Dosage: 0.6 MG, DAILY
     Dates: start: 20170110

REACTIONS (4)
  - Drug dose omission [Not Recovered/Not Resolved]
  - Device malfunction [Not Recovered/Not Resolved]
  - Injection site bruising [Unknown]
  - Drug prescribing error [Unknown]

NARRATIVE: CASE EVENT DATE: 20170324
